FAERS Safety Report 6531162-8 (Version None)
Quarter: 2010Q1

REPORT INFORMATION
  Report Type: 
  Country: None (occurrence: None)
  Receive Date: 20100108
  Receipt Date: 20091231
  Transmission Date: 20100710
  Serious: Yes (Life-Threatening, Other)
  Sender: FDA-Public Use
  Company Number: US-BAYER-200714585BWH

PATIENT
  Age: 83 Year
  Sex: Female
  Weight: 86 kg

DRUGS (23)
  1. CIPRO [Suspect]
     Indication: COLITIS
     Route: 042
     Dates: start: 20071018, end: 20071018
  2. CIPRO [Suspect]
     Route: 042
     Dates: start: 20071019, end: 20071019
  3. ATIVAN [Concomitant]
     Route: 030
     Dates: start: 20071019
  4. IV FLUIDS [Concomitant]
  5. LEVOXYL [Concomitant]
  6. MECLIZINE [Concomitant]
  7. GLYBURIDE [Concomitant]
     Dosage: TOTAL DAILY DOSE: 5 MG
  8. ASPIRIN [Concomitant]
  9. EPOGEN [Concomitant]
  10. TPN [Concomitant]
  11. INSULIN [Concomitant]
     Route: 042
  12. PREVACID [Concomitant]
  13. SYNTHROID [Concomitant]
  14. SOLU-MEDROL [Concomitant]
  15. METOPROLOL [Concomitant]
  16. ZOFRAN [Concomitant]
     Dates: start: 20071001
  17. ZETIA [Concomitant]
  18. FISH OIL [Concomitant]
  19. PRILOSEC [Concomitant]
  20. BIAXIN [Concomitant]
  21. FLAGYL [Concomitant]
     Route: 042
     Dates: start: 20071001
  22. LOPRESSOR [Concomitant]
  23. ACYCLOVIR [Concomitant]
     Route: 042

REACTIONS (7)
  - CONVULSION [None]
  - DEPRESSED LEVEL OF CONSCIOUSNESS [None]
  - ENCEPHALITIS [None]
  - MENTAL STATUS CHANGES [None]
  - MYOCARDIAL INFARCTION [None]
  - RESPIRATORY FAILURE [None]
  - STAPHYLOCOCCAL BACTERAEMIA [None]
